FAERS Safety Report 20693472 (Version 3)
Quarter: 2022Q2

REPORT INFORMATION
  Report Type: Report from Study
  Country: AU (occurrence: AU)
  Receive Date: 20220411
  Receipt Date: 20220516
  Transmission Date: 20220720
  Serious: Yes (Hospitalization, Other)
  Sender: FDA-Public Use
  Company Number: AU-BIOGEN-2022BI01112405

PATIENT
  Age: 0 Year
  Sex: Female

DRUGS (1)
  1. TECFIDERA [Suspect]
     Active Substance: DIMETHYL FUMARATE
     Indication: Maternal exposure timing unspecified
     Route: 064
     Dates: start: 20200920, end: 20210706

REACTIONS (3)
  - Foetal heart rate increased [Recovered/Resolved]
  - Congenital anomaly [Unknown]
  - Foetal exposure during pregnancy [Recovered/Resolved]

NARRATIVE: CASE EVENT DATE: 20220310
